FAERS Safety Report 25643191 (Version 1)
Quarter: 2025Q3

REPORT INFORMATION
  Report Type: Spontaneous
  Country: JP (occurrence: JP)
  Receive Date: 20250805
  Receipt Date: 20250805
  Transmission Date: 20251021
  Serious: Yes (Death, Hospitalization)
  Sender: AMGEN
  Company Number: JP-AMGEN-JPNSP2025150643

PATIENT
  Age: 97 Year
  Sex: Male

DRUGS (1)
  1. EVENITY [Suspect]
     Active Substance: ROMOSOZUMAB-AQQG
     Indication: Product used for unknown indication
     Route: 058

REACTIONS (2)
  - Cardiac failure [Fatal]
  - Femur fracture [Unknown]
